FAERS Safety Report 5266421-2 (Version None)
Quarter: 2007Q1

REPORT INFORMATION
  Report Type: 
  Country: None (occurrence: None)
  Receive Date: 20070315
  Receipt Date: 20070216
  Transmission Date: 20070707
  Serious: No
  Sender: FDA-Public Use
  Company Number: US-GLAXOSMITHKLINE-A0640036A

PATIENT
  Sex: Male

DRUGS (12)
  1. FLOVENT [Suspect]
     Indication: CHRONIC OBSTRUCTIVE PULMONARY DISEASE
     Route: 055
     Dates: start: 19920101
  2. ALBUTEROL [Concomitant]
  3. SEREVENT [Concomitant]
  4. PRILOSEC [Concomitant]
  5. THEOPHYLLINE [Concomitant]
  6. CARDIZEM CD [Concomitant]
  7. ZOCOR [Concomitant]
  8. MICRO-K [Concomitant]
  9. LASIX [Concomitant]
  10. PLAVIX [Concomitant]
  11. LEXAPRO [Concomitant]
  12. ATROVENT [Concomitant]

REACTIONS (2)
  - DYSPNOEA [None]
  - PHARMACEUTICAL PRODUCT COMPLAINT [None]
